FAERS Safety Report 19506488 (Version 1)
Quarter: 2021Q3

REPORT INFORMATION
  Report Type: Spontaneous
  Country: US (occurrence: US)
  Receive Date: 20210708
  Receipt Date: 20210708
  Transmission Date: 20211014
  Serious: Yes (Other)
  Sender: FDA-Public Use
  Company Number: US-PFIZER INC-2021769887

PATIENT
  Age: 31 Week
  Sex: Male
  Weight: 1.34 kg

DRUGS (1)
  1. FENTANYL CITRATE. [Suspect]
     Active Substance: FENTANYL CITRATE
     Dosage: 3 UG/KG/H SHORTLY
     Route: 042

REACTIONS (2)
  - Urinary retention [Unknown]
  - Hydronephrosis [Unknown]
